FAERS Safety Report 8044434-5 (Version None)
Quarter: 2012Q1

REPORT INFORMATION
  Report Type: 
  Country: None (occurrence: None)
  Receive Date: 20120113
  Receipt Date: 20120110
  Transmission Date: 20120608
  Serious: Yes (Hospitalization, Other)
  Sender: FDA-Public Use
  Company Number: DE-ABBOTT-12P-062-0889136-00

PATIENT
  Sex: Male

DRUGS (27)
  1. ZOLPIDEM [Concomitant]
     Indication: PRODUCT USED FOR UNKNOWN INDICATION
  2. LEVOTHYROXINE SODIUM [Concomitant]
     Indication: PRODUCT USED FOR UNKNOWN INDICATION
     Dosage: 100 MG DAILY
  3. MAGNESIUM [Concomitant]
     Indication: PRODUCT USED FOR UNKNOWN INDICATION
  4. SPONDYVIT [Concomitant]
     Indication: PRODUCT USED FOR UNKNOWN INDICATION
  5. KATADOLON S [Concomitant]
     Indication: PRODUCT USED FOR UNKNOWN INDICATION
  6. VERSATIS PLASTER [Concomitant]
     Indication: PRODUCT USED FOR UNKNOWN INDICATION
  7. GINGIUM INTENS [Concomitant]
     Indication: PRODUCT USED FOR UNKNOWN INDICATION
     Dosage: 120 MG DAILY
  8. PALEXIA RET [Concomitant]
     Indication: PRODUCT USED FOR UNKNOWN INDICATION
     Dosage: 200 MG DAILY
  9. PALEXIA RET [Concomitant]
     Dosage: 50 MG DAILY
  10. TORSEMIDE [Concomitant]
     Indication: PRODUCT USED FOR UNKNOWN INDICATION
     Dosage: 10 MG DAILY
  11. CEFURAX [Concomitant]
     Indication: PRODUCT USED FOR UNKNOWN INDICATION
     Dates: end: 20120104
  12. AZATHIOPRINE [Concomitant]
  13. AZATHIOPRINE [Concomitant]
     Indication: PRODUCT USED FOR UNKNOWN INDICATION
  14. LORAZEPAM [Concomitant]
     Indication: PRODUCT USED FOR UNKNOWN INDICATION
  15. VALORON [Concomitant]
     Indication: PRODUCT USED FOR UNKNOWN INDICATION
  16. ASPIRIN [Concomitant]
     Indication: PRODUCT USED FOR UNKNOWN INDICATION
     Dosage: 100 MG DAILY
  17. LYRICA [Concomitant]
     Indication: PRODUCT USED FOR UNKNOWN INDICATION
  18. NEXIUM [Concomitant]
     Indication: PRODUCT USED FOR UNKNOWN INDICATION
     Dosage: 40 MG DAILY
  19. ATORVASTATIN CALCIUM [Concomitant]
     Indication: PRODUCT USED FOR UNKNOWN INDICATION
     Dosage: 40 MG DAILY
  20. VOLTAREN [Concomitant]
     Indication: PRODUCT USED FOR UNKNOWN INDICATION
  21. HUMIRA [Suspect]
     Indication: RHEUMATOID ARTHRITIS
     Route: 058
     Dates: start: 20101102
  22. AMLODIPINE [Concomitant]
     Indication: PRODUCT USED FOR UNKNOWN INDICATION
     Dosage: 5 MG DAILY
  23. METOPROLOL SUCCINATE [Concomitant]
     Indication: PRODUCT USED FOR UNKNOWN INDICATION
     Dosage: 95 MG
  24. DELIX PROTECT [Concomitant]
     Indication: PRODUCT USED FOR UNKNOWN INDICATION
     Dosage: 10 MILLIGRAM
  25. URSOVALK [Concomitant]
     Indication: PRODUCT USED FOR UNKNOWN INDICATION
  26. VITASPRINT B12 [Concomitant]
     Indication: PRODUCT USED FOR UNKNOWN INDICATION
  27. CALCIUM D3 [Concomitant]
     Indication: PRODUCT USED FOR UNKNOWN INDICATION
     Dosage: 500 MG DAILY

REACTIONS (7)
  - ULNA FRACTURE [None]
  - FALL [None]
  - CRANIOCEREBRAL INJURY [None]
  - PERSONALITY CHANGE [None]
  - BONE FRAGMENTATION [None]
  - SYNCOPE [None]
  - UPPER LIMB FRACTURE [None]
